FAERS Safety Report 8619998-0 (Version None)
Quarter: 2012Q3

REPORT INFORMATION
  Report Type: 
  Country: None (occurrence: None)
  Receive Date: 20120824
  Receipt Date: 20120820
  Transmission Date: 20120928
  Serious: Yes (Hospitalization)
  Sender: FDA-Public Use
  Company Number: PHEH2012US016362

PATIENT
  Sex: Female

DRUGS (20)
  1. MODAFINIL [Concomitant]
  2. LUNESTA [Concomitant]
  3. GILENYA [Suspect]
     Indication: MULTIPLE SCLEROSIS
     Dosage: 0.5 MG, QD
     Route: 048
     Dates: start: 20101209, end: 20110601
  4. POTASSIUM [Concomitant]
  5. OXYBUTYNIN [Concomitant]
  6. GILENYA [Suspect]
     Dosage: 0.5 MG, QD
     Route: 048
     Dates: start: 20110620
  7. LOSARTAN POTASSIUM [Concomitant]
  8. LANSOPRAZOLE [Concomitant]
  9. TRIAMTERENE [Concomitant]
  10. SIMVASTATIN [Concomitant]
  11. FAVELLA [Concomitant]
  12. METOPROLOL TARTRATE [Concomitant]
  13. ROPINIROLE [Concomitant]
  14. CYTOMEL [Concomitant]
  15. BETHANECHOL [Concomitant]
  16. ASCORBIC ACID [Concomitant]
  17. VITAMIN D [Concomitant]
  18. CRANBERRY [Concomitant]
  19. CUPROPION [Concomitant]
  20. CALCIUM [Concomitant]

REACTIONS (3)
  - CHEST PAIN [None]
  - HEART RATE IRREGULAR [None]
  - DEPRESSION [None]
